FAERS Safety Report 13376716 (Version 7)
Quarter: 2018Q3

REPORT INFORMATION
  Report Type: Spontaneous
  Country: JP (occurrence: JP)
  Receive Date: 20170328
  Receipt Date: 20180926
  Transmission Date: 20181010
  Serious: Yes (Other)
  Sender: FDA-Public Use
  Company Number: JP-LUNDBECK-DKLU2026276

PATIENT
  Age: 10 Month
  Sex: Male
  Weight: 8 kg

DRUGS (17)
  1. SABRIL [Suspect]
     Active Substance: VIGABATRIN
     Route: 048
     Dates: start: 20170410, end: 20170416
  2. BAKTAR [Concomitant]
     Active Substance: SULFAMETHOXAZOLE\TRIMETHOPRIM
     Indication: PROPHYLAXIS
     Route: 065
     Dates: start: 20170130
  3. RIVOTRIL [Concomitant]
     Active Substance: CLONAZEPAM
     Indication: EPILEPSY
     Route: 065
     Dates: start: 20170503
  4. NELBON [Concomitant]
     Active Substance: NITRAZEPAM
     Indication: EPILEPSY
     Route: 065
     Dates: start: 20170113, end: 20170502
  5. DEPAKENE [Concomitant]
     Active Substance: VALPROIC ACID
     Indication: INFANTILE SPASMS
     Route: 065
     Dates: start: 20161212
  6. SABRIL [Suspect]
     Active Substance: VIGABATRIN
     Indication: INFANTILE SPASMS
     Route: 048
     Dates: start: 20170201, end: 20170202
  7. SABRIL [Suspect]
     Active Substance: VIGABATRIN
     Route: 048
     Dates: start: 20170203, end: 20170214
  8. SABRIL [Suspect]
     Active Substance: VIGABATRIN
     Route: 048
     Dates: start: 20170419, end: 20170421
  9. L?CARTIN [Concomitant]
     Active Substance: LEVOCARNITINE HYDROCHLORIDE
     Indication: EPILEPSY
     Route: 065
     Dates: start: 20170130
  10. FUROSEMIDE. [Concomitant]
     Active Substance: FUROSEMIDE
     Indication: POLYURIA
     Route: 065
     Dates: start: 20170130
  11. ALDACTONE?A [Concomitant]
     Active Substance: SPIRONOLACTONE
     Indication: POLYURIA
     Route: 065
     Dates: start: 20170130
  12. SABRIL [Suspect]
     Active Substance: VIGABATRIN
     Route: 048
     Dates: start: 20170215, end: 20170409
  13. ZONISAMIDE. [Concomitant]
     Active Substance: ZONISAMIDE
     Indication: EPILEPSY
     Route: 065
     Dates: start: 20170506
  14. SABRIL [Suspect]
     Active Substance: VIGABATRIN
     Route: 048
     Dates: start: 20170417, end: 20170418
  15. SABRIL [Suspect]
     Active Substance: VIGABATRIN
     Route: 048
     Dates: start: 20170422, end: 20170425
  16. PHENOBAL [Concomitant]
     Active Substance: PHENOBARBITAL
     Indication: INFANTILE SPASMS
     Route: 065
     Dates: start: 20161228, end: 20170221
  17. INCREMIN [Concomitant]
     Active Substance: FERRIC PYROPHOSPHATE
     Indication: ANAEMIA
     Route: 065
     Dates: start: 20170130, end: 20170215

REACTIONS (4)
  - Status epilepticus [Recovered/Resolved]
  - Somnolence [Recovering/Resolving]
  - Drug ineffective [Unknown]
  - Myoclonus [Recovered/Resolved]

NARRATIVE: CASE EVENT DATE: 20170201
